FAERS Safety Report 7119726-4 (Version None)
Quarter: 2010Q4

REPORT INFORMATION
  Report Type: 
  Country: None (occurrence: None)
  Receive Date: 20101115
  Receipt Date: 20101108
  Transmission Date: 20110411
  Serious: Yes (Life-Threatening)
  Sender: FDA-Public Use
  Company Number: 2010US003855

PATIENT
  Age: 86 Year
  Sex: Female

DRUGS (5)
  1. AMBISOME [Suspect]
     Indication: PNEUMONIA CRYPTOCOCCAL
     Dosage: 32 MG, UID/QD, IV NOS
     Route: 042
     Dates: start: 20100911, end: 20100915
  2. CIPROFLOXACIN HCL [Concomitant]
  3. SULBACILLIN (AMPICILLIN SODIUM, SULBACTAM SODIUM) [Concomitant]
  4. COTRIM [Concomitant]
  5. RED BLOOD CELLS [Concomitant]

REACTIONS (7)
  - CONDITION AGGRAVATED [None]
  - HYPERKALAEMIA [None]
  - HYPOGLYCAEMIA [None]
  - NOCARDIOSIS [None]
  - PNEUMONIA BACTERIAL [None]
  - PNEUMONIA CRYPTOCOCCAL [None]
  - RENAL FAILURE [None]
